FAERS Safety Report 17108788 (Version 1)
Quarter: 2019Q4

REPORT INFORMATION
  Report Type: Spontaneous
  Country: RU (occurrence: RU)
  Receive Date: 20191204
  Receipt Date: 20191204
  Transmission Date: 20200122
  Serious: Yes (Other)
  Sender: FDA-Public Use
  Company Number: RU-ROCHE-2480713

PATIENT
  Age: 71 Year
  Sex: Female

DRUGS (1)
  1. KADCYLA [Suspect]
     Active Substance: ADO-TRASTUZUMAB EMTANSINE
     Indication: ADJUVANT THERAPY
     Route: 065

REACTIONS (3)
  - Judgement impaired [Unknown]
  - Asphyxia [Unknown]
  - Bronchial disorder [Unknown]
